FAERS Safety Report 20258553 (Version 2)
Quarter: 2022Q1

REPORT INFORMATION
  Report Type: Report from Study
  Country: US (occurrence: US)
  Receive Date: 20211230
  Receipt Date: 20220301
  Transmission Date: 20220423
  Serious: Yes (Other)
  Sender: FDA-Public Use
  Company Number: US-Taiho Oncology Inc-EU-2021-04048

PATIENT
  Sex: Female

DRUGS (1)
  1. LONSURF [Suspect]
     Active Substance: TIPIRACIL HYDROCHLORIDE\TRIFLURIDINE
     Indication: Product used for unknown indication
     Dosage: CYCLE NUMBER 2.
     Route: 048

REACTIONS (2)
  - Cerebrovascular accident [Unknown]
  - Product dose omission issue [Unknown]
